FAERS Safety Report 25853640 (Version 1)
Quarter: 2025Q3

REPORT INFORMATION
  Report Type: Report from Study
  Country: US (occurrence: US)
  Receive Date: 20250926
  Receipt Date: 20250926
  Transmission Date: 20251020
  Serious: Yes (Hospitalization, Other)
  Sender: GLAXOSMITHKLINE
  Company Number: US-GLAXOSMITHKLINE INC-US2025117972

PATIENT
  Age: 48 Year
  Sex: Male

DRUGS (3)
  1. MEPOLIZUMAB [Suspect]
     Active Substance: MEPOLIZUMAB
     Indication: Chronic sinusitis
  2. MEPOLIZUMAB [Suspect]
     Active Substance: MEPOLIZUMAB
     Indication: Nasal polyps
  3. DUPIXENT [Concomitant]
     Active Substance: DUPILUMAB
     Indication: Product used for unknown indication

REACTIONS (10)
  - Hospitalisation [Unknown]
  - Cerebrovascular accident [Unknown]
  - Cardiac operation [Unknown]
  - Rib fracture [Not Recovered/Not Resolved]
  - Fall [Unknown]
  - General physical health deterioration [Unknown]
  - Sinus polyp [Unknown]
  - Cardiomegaly [Unknown]
  - Drug ineffective [Unknown]
  - Discontinued product administered [Unknown]

NARRATIVE: CASE EVENT DATE: 20250908
